FAERS Safety Report 14817383 (Version 1)
Quarter: 2018Q2

REPORT INFORMATION
  Report Type: Spontaneous
  Country: US (occurrence: US)
  Receive Date: 20180426
  Receipt Date: 20180426
  Transmission Date: 20180711
  Serious: No
  Sender: FDA-Public Use
  Company Number: PHEH2018US015149

PATIENT
  Sex: Female

DRUGS (1)
  1. ATENOLOL SANDOZ [Suspect]
     Active Substance: ATENOLOL
     Indication: PRODUCT USED FOR UNKNOWN INDICATION
     Dosage: 0.5 DF, BID (HALF PLL IN THE MORNING AND HALF PILL IN THE NIGHT)
     Route: 065
     Dates: start: 20180403

REACTIONS (2)
  - Wrong technique in product usage process [Unknown]
  - Headache [Unknown]
